FAERS Safety Report 8856180 (Version 1)
Quarter: 2012Q4

REPORT INFORMATION
  Report Type: Spontaneous
  Country: US (occurrence: None)
  Receive Date: 20121023
  Receipt Date: 20121023
  Transmission Date: 20130627
  Serious: No
  Sender: FDA-Public Use
  Company Number: None

PATIENT
  Sex: Female
  Weight: 63.5 kg

DRUGS (1)
  1. AMPYRA [Suspect]
     Indication: MS
     Route: 048
     Dates: start: 20120808, end: 20121008

REACTIONS (1)
  - Drug ineffective [None]
